FAERS Safety Report 12465622 (Version 2)
Quarter: 2016Q2

REPORT INFORMATION
  Report Type: Spontaneous
  Country: FR (occurrence: FR)
  Receive Date: 20160614
  Receipt Date: 20160623
  Transmission Date: 20160815
  Serious: Yes (Death, Other)
  Sender: FDA-Public Use
  Company Number: FR-WATSON-2016-12221

PATIENT
  Age: 68 Year
  Sex: Female

DRUGS (1)
  1. AMLODIPINE [Suspect]
     Active Substance: AMLODIPINE BESYLATE
     Indication: PRODUCT USED FOR UNKNOWN INDICATION
     Dosage: 0.9 G, SINGLE
     Route: 048

REACTIONS (4)
  - Overdose [Not Recovered/Not Resolved]
  - Organ failure [Fatal]
  - Shock [Not Recovered/Not Resolved]
  - Hypotension [Not Recovered/Not Resolved]
